FAERS Safety Report 11831135 (Version 2)
Quarter: 2016Q2

REPORT INFORMATION
  Report Type: Spontaneous
  Country: US (occurrence: US)
  Receive Date: 20151214
  Receipt Date: 20160621
  Transmission Date: 20160815
  Serious: No
  Sender: FDA-Public Use
  Company Number: US-BRISTOL-MYERS SQUIBB COMPANY-BMS-2015-084411

PATIENT
  Sex: Female
  Weight: 74.83 kg

DRUGS (1)
  1. OPDIVO [Suspect]
     Active Substance: NIVOLUMAB
     Indication: MEDIASTINUM NEOPLASM
     Route: 065

REACTIONS (6)
  - Chills [Unknown]
  - Pruritus [Unknown]
  - Hyperhidrosis [Unknown]
  - Pyrexia [Unknown]
  - Off label use [Unknown]
  - Fatigue [Unknown]

NARRATIVE: CASE EVENT DATE: 20151118
